FAERS Safety Report 10191310 (Version 2)
Quarter: 2014Q3

REPORT INFORMATION
  Report Type: Report from Study
  Country: JP (occurrence: JP)
  Receive Date: 20140523
  Receipt Date: 20140703
  Transmission Date: 20150326
  Serious: No
  Sender: FDA-Public Use
  Company Number: JP-009507513-1405JPN010324

PATIENT
  Age: 73 Year
  Sex: Male

DRUGS (24)
  1. FOSAPREPITANT DIMEGLUMINE [Suspect]
     Active Substance: FOSAPREPITANT DIMEGLUMINE
     Indication: PROPHYLAXIS OF NAUSEA AND VOMITING
     Dosage: 150 MG, ONCE A DAY
     Route: 041
     Dates: start: 20121203, end: 20121203
  2. DECADRON [Concomitant]
     Active Substance: DEXAMETHASONE
     Dosage: UNK
     Dates: start: 20121227, end: 20121229
  3. GOSHA-JINKI-GAN [Concomitant]
     Dosage: UNK
     Dates: start: 20121203, end: 20121213
  4. ELPLAT [Concomitant]
     Active Substance: OXALIPLATIN
     Dosage: 220 MG, UNK
     Dates: start: 20121203, end: 20121203
  5. ALOXI [Concomitant]
     Active Substance: PALONOSETRON HYDROCHLORIDE
     Dosage: UNK
     Dates: start: 20121226, end: 20121226
  6. NOVAMIN [Concomitant]
     Active Substance: PROCHLORPERAZINE MALEATE
     Dosage: UNK
     Dates: start: 20121226, end: 20130115
  7. MAGMITT [Concomitant]
     Active Substance: MAGNESIUM OXIDE
     Dosage: UNK
     Dates: start: 20121226, end: 20121231
  8. BLOPRESS [Concomitant]
     Active Substance: CANDESARTAN CILEXETIL
     Dosage: UNK
     Dates: start: 20120303, end: 20140614
  9. DECADRON [Concomitant]
     Active Substance: DEXAMETHASONE
     Dosage: UNK
     Dates: start: 20121203, end: 20121203
  10. PRIMPERAN [Concomitant]
     Active Substance: METOCLOPRAMIDE HYDROCHLORIDE
     Dosage: UNK
     Dates: start: 20121226, end: 20121230
  11. ELPLAT [Concomitant]
     Active Substance: OXALIPLATIN
     Dosage: 200 MG, UNK
     Dates: start: 20121226, end: 20121226
  12. XELODA [Concomitant]
     Active Substance: CAPECITABINE
     Dosage: 4200MG
     Dates: start: 20121203, end: 20121213
  13. DECADRON [Concomitant]
     Active Substance: DEXAMETHASONE
     Dosage: UNK
     Dates: start: 20121204, end: 20121205
  14. PURSENNID (SENNOSIDES) [Concomitant]
     Dosage: UNK
     Dates: start: 20121203, end: 20121213
  15. DECADRON [Concomitant]
     Active Substance: DEXAMETHASONE
     Dosage: UNK
     Dates: start: 20121226, end: 20121226
  16. ALOXI [Concomitant]
     Active Substance: PALONOSETRON HYDROCHLORIDE
     Dosage: UNK
     Dates: start: 20121203, end: 20121203
  17. LIPITOR [Concomitant]
     Active Substance: ATORVASTATIN CALCIUM
     Dosage: UNK
     Dates: start: 20121203, end: 20140614
  18. FOSAPREPITANT DIMEGLUMINE [Suspect]
     Active Substance: FOSAPREPITANT DIMEGLUMINE
     Dosage: 150 MG, ONCE A DAY
     Route: 041
     Dates: start: 20121226, end: 20121226
  19. XELODA [Concomitant]
     Active Substance: CAPECITABINE
     Dosage: 3000 MG
     Dates: start: 20121226, end: 20121231
  20. PRIMPERAN [Concomitant]
     Active Substance: METOCLOPRAMIDE HYDROCHLORIDE
     Dosage: UNK
     Dates: start: 20121203, end: 20121207
  21. PYRIDOXAL [Concomitant]
     Active Substance: PYRIDOXAL
     Dosage: UNK
     Dates: start: 20121203, end: 20121213
  22. GOSHA-JINKI-GAN [Concomitant]
     Dosage: UNK
     Dates: start: 20121226, end: 20121231
  23. PURSENNID (SENNOSIDES) [Concomitant]
     Dosage: UNK
     Route: 065
     Dates: start: 20121226, end: 20121231
  24. PYRIDOXAL [Concomitant]
     Active Substance: PYRIDOXAL
     Dosage: UNK
     Dates: start: 20121226, end: 20121231

REACTIONS (1)
  - Ileus [Recovered/Resolved]

NARRATIVE: CASE EVENT DATE: 20121213
